FAERS Safety Report 4727642-8 (Version None)
Quarter: 2005Q3

REPORT INFORMATION
  Report Type: 
  Country: None (occurrence: None)
  Receive Date: 20050728
  Receipt Date: 20050728
  Transmission Date: 20060218
  Serious: No
  Sender: FDA-Public Use
  Company Number: None

PATIENT
  Age: 30 Year
  Sex: Female

DRUGS (1)
  1. GEODON [Suspect]
     Indication: SCHIZOPHRENIA
     Dosage: 80 MG BID PO
     Route: 048
     Dates: start: 20050713, end: 20050715

REACTIONS (3)
  - DRUG INEFFECTIVE [None]
  - DYSTONIA [None]
  - MUSCULOSKELETAL STIFFNESS [None]
